FAERS Safety Report 11295917 (Version 1)
Quarter: 2015Q3

REPORT INFORMATION
  Report Type: Spontaneous
  Country: US (occurrence: None)
  Receive Date: 20150722
  Receipt Date: 20150722
  Transmission Date: 20151125
  Serious: Yes (Hospitalization)
  Sender: FDA-Public Use
  Company Number: None

PATIENT
  Age: 89 Year
  Sex: Female
  Weight: 96.6 kg

DRUGS (12)
  1. CARVEDILOL. [Concomitant]
     Active Substance: CARVEDILOL
  2. XARELTO [Suspect]
     Active Substance: RIVAROXABAN
     Indication: ATRIAL FIBRILLATION
     Route: 048
     Dates: start: 20140510, end: 20140818
  3. POTASSIUM CHLORIDE. [Concomitant]
     Active Substance: POTASSIUM CHLORIDE
  4. LOSARTAN. [Concomitant]
     Active Substance: LOSARTAN
  5. SIMVASTATIN. [Concomitant]
     Active Substance: SIMVASTATIN
  6. BIMATOPROST. [Concomitant]
     Active Substance: BIMATOPROST
  7. CLONIDINE. [Concomitant]
     Active Substance: CLONIDINE
  8. ALLOPURINOL. [Concomitant]
     Active Substance: ALLOPURINOL
  9. COLCHICINE. [Concomitant]
     Active Substance: COLCHICINE
  10. RIVAROXABAN [Concomitant]
     Active Substance: RIVAROXABAN
  11. OMEPRAZOLE. [Concomitant]
     Active Substance: OMEPRAZOLE
  12. FUROSEMIDE. [Concomitant]
     Active Substance: FUROSEMIDE

REACTIONS (2)
  - Pulmonary haemorrhage [None]
  - Haemoptysis [None]

NARRATIVE: CASE EVENT DATE: 20140818
